FAERS Safety Report 13958646 (Version 1)
Quarter: 2017Q3

REPORT INFORMATION
  Report Type: Spontaneous
  Country: US (occurrence: US)
  Receive Date: 20170911
  Receipt Date: 20170911
  Transmission Date: 20171128
  Serious: No
  Sender: FDA-Public Use
  Company Number: US-ROCHE-1038262

PATIENT
  Age: 44 Year
  Sex: Female

DRUGS (1)
  1. RITUXAN [Suspect]
     Active Substance: RITUXIMAB
     Indication: RHEUMATOID ARTHRITIS
     Route: 041
     Dates: start: 200910

REACTIONS (8)
  - Coordination abnormal [Unknown]
  - Visual impairment [Unknown]
  - Diplopia [Unknown]
  - Hernia [Unknown]
  - Muscular weakness [Unknown]
  - Memory impairment [Unknown]
  - Vertigo [Unknown]
  - Communication disorder [Unknown]
